FAERS Safety Report 5608741-5 (Version None)
Quarter: 2008Q1

REPORT INFORMATION
  Report Type: 
  Country: None (occurrence: None)
  Receive Date: 20080129
  Receipt Date: 20080129
  Transmission Date: 20080703
  Serious: Yes (Hospitalization)
  Sender: FDA-Public Use
  Company Number: None

PATIENT
  Sex: Female
  Weight: 73 kg

DRUGS (2)
  1. ELSPAR [Suspect]
     Dosage: 36000 MILLION IU
     Dates: end: 20080108
  2. METHOTREXATE [Suspect]
     Dosage: 400 MG
     Dates: end: 20080107

REACTIONS (17)
  - BLOOD CULTURE POSITIVE [None]
  - BLOOD POTASSIUM ABNORMAL [None]
  - DEEP VEIN THROMBOSIS [None]
  - HAEMOGLOBIN ABNORMAL [None]
  - HYPOCALCAEMIA [None]
  - INFECTION [None]
  - JUGULAR VEIN THROMBOSIS [None]
  - LYMPHOPENIA [None]
  - MOUTH ULCERATION [None]
  - MUCOSAL INFLAMMATION [None]
  - NEUTROPHIL COUNT DECREASED [None]
  - PHARYNGEAL DISORDER [None]
  - PHARYNGOLARYNGEAL PAIN [None]
  - PLATELET DISORDER [None]
  - STAPHYLOCOCCAL INFECTION [None]
  - THROMBOSIS [None]
  - ULCER [None]
